FAERS Safety Report 7003696-3 (Version None)
Quarter: 2010Q3

REPORT INFORMATION
  Report Type: 
  Country: None (occurrence: None)
  Receive Date: 20100920
  Receipt Date: 20100201
  Transmission Date: 20110219
  Serious: Yes (Hospitalization)
  Sender: FDA-Public Use
  Company Number: US-WYE-H10427409

PATIENT
  Sex: Female
  Weight: 54.48 kg

DRUGS (7)
  1. PRISTIQ [Suspect]
     Indication: DEPRESSION
     Route: 048
     Dates: start: 20090726, end: 20090801
  2. SEROQUEL [Concomitant]
     Indication: DEPRESSION
     Dosage: 12.5 MG PRN; INCREASED WHILE HOSPITALIZED
  3. CIPROFLOXACIN HYDROCHLORIDE [Concomitant]
     Indication: CYSTITIS
     Dosage: UNKNOWN
     Dates: start: 20090701, end: 20090701
  4. AMLODIPINE [Concomitant]
     Indication: HYPERTENSION
     Dosage: UNKNOWN
  5. PROPRANOLOL [Concomitant]
  6. KLONOPIN [Concomitant]
     Indication: ANXIETY
     Dosage: UNKNOWN
  7. LEVOTHYROXINE SODIUM [Concomitant]
     Indication: HYPOTHYROIDISM
     Dosage: 82 MCG DAILY

REACTIONS (8)
  - ACTIVITIES OF DAILY LIVING IMPAIRED [None]
  - ANTISOCIAL BEHAVIOUR [None]
  - CONDITION AGGRAVATED [None]
  - DECREASED APPETITE [None]
  - DEPRESSION [None]
  - NAUSEA [None]
  - TREMOR [None]
  - UNEVALUABLE EVENT [None]
